FAERS Safety Report 9818805 (Version 2)
Quarter: 2014Q1

REPORT INFORMATION
  Report Type: Spontaneous
  Country: ES (occurrence: ES)
  Receive Date: 20140115
  Receipt Date: 20140115
  Transmission Date: 20141002
  Serious: Yes (Life-Threatening)
  Sender: FDA-Public Use
  Company Number: ES-ABBVIE-12P-144-0974615-00

PATIENT
  Sex: Female

DRUGS (11)
  1. CALCITRIOL [Suspect]
     Indication: HYPOPARATHYROIDISM
  2. CALCIUM [Suspect]
     Indication: HYPOPARATHYROIDISM
     Route: 048
  3. CALCIUM [Suspect]
     Route: 042
  4. CALCIUM [Suspect]
  5. MAGNESIUM [Suspect]
     Indication: HYPOPARATHYROIDISM
     Route: 048
  6. MAGNESIUM [Suspect]
     Route: 042
  7. MAGNESIUM [Suspect]
  8. CALCITRIOL [Suspect]
     Indication: HYPOPARATHYROIDISM
     Route: 048
  9. CALCITRIOL [Suspect]
  10. FORSTEO [Suspect]
     Indication: PRODUCT USED FOR UNKNOWN INDICATION
     Route: 058
  11. THIAZIDE [Suspect]
     Indication: PRODUCT USED FOR UNKNOWN INDICATION

REACTIONS (1)
  - No therapeutic response [Recovered/Resolved]
